FAERS Safety Report 19105958 (Version 2)
Quarter: 2021Q2

REPORT INFORMATION
  Report Type: Other
  Country: None (occurrence: None)
  Receive Date: 20210407
  Receipt Date: 20210421
  Transmission Date: 20210717
  Serious: Yes (Life-Threatening, Other)
  Sender: FDA-Public Use
  Company Number: US-DEXPHARM-20210442

PATIENT
  Age: 7 Year
  Sex: Male

DRUGS (6)
  1. METHOTREXATE. [Suspect]
     Active Substance: METHOTREXATE
  2. ETOPOSIDE. [Concomitant]
     Active Substance: ETOPOSIDE
  3. PREDNISONE. [Concomitant]
     Active Substance: PREDNISONE
  4. DOXORUBICIN [Concomitant]
     Active Substance: DOXORUBICIN
  5. DEXAMETHASONE. [Suspect]
     Active Substance: DEXAMETHASONE
  6. VINCRISTINE [Suspect]
     Active Substance: VINCRISTINE

REACTIONS (2)
  - Hodgkin^s disease [Recovered/Resolved]
  - Drug interaction [Recovered/Resolved]
